FAERS Safety Report 21011645 (Version 4)
Quarter: 2022Q4

REPORT INFORMATION
  Report Type: Report from Study
  Country: DO (occurrence: DO)
  Receive Date: 20220627
  Receipt Date: 20221130
  Transmission Date: 20230113
  Serious: Yes (Other)
  Sender: FDA-Public Use
  Company Number: DO-NOVARTISPH-NVSC2022DO145716

PATIENT
  Sex: Female

DRUGS (3)
  1. KISQALI [Suspect]
     Active Substance: RIBOCICLIB
     Indication: Breast cancer
     Dosage: 400 MG, QD
     Route: 048
     Dates: start: 20220313
  2. KISQALI [Suspect]
     Active Substance: RIBOCICLIB
     Dosage: 600 MG, QD
     Route: 048
     Dates: start: 20220313
  3. KISQALI [Suspect]
     Active Substance: RIBOCICLIB
     Dosage: 400 MG, QD, (4 TO 5 MONTHS AGO)
     Route: 048
     Dates: start: 2022

REACTIONS (25)
  - Abscess jaw [Unknown]
  - Immunodeficiency [Unknown]
  - Oropharyngeal discomfort [Unknown]
  - Abdominal distension [Unknown]
  - Arthropathy [Unknown]
  - Furuncle [Unknown]
  - Discomfort [Unknown]
  - Somnolence [Unknown]
  - Tonsillar disorder [Unknown]
  - Hyperhidrosis [Unknown]
  - Abscess [Unknown]
  - Subcutaneous abscess [Unknown]
  - Tachycardia [Unknown]
  - Bone disorder [Unknown]
  - Pain [Unknown]
  - Stomatitis [Unknown]
  - Back pain [Unknown]
  - Dizziness [Unknown]
  - Peripheral swelling [Unknown]
  - Decreased appetite [Unknown]
  - Pyrexia [Unknown]
  - Headache [Unknown]
  - Alopecia [Unknown]
  - Weight decreased [Unknown]
  - White blood cell count decreased [Unknown]
